APPROVED DRUG PRODUCT: METHYLDOPA
Active Ingredient: METHYLDOPA
Strength: 250MG
Dosage Form/Route: TABLET;ORAL
Application: A071106 | Product #001
Applicant: TEVA PHARMACEUTICALS USA INC
Approved: Dec 5, 1986 | RLD: No | RS: No | Type: DISCN